FAERS Safety Report 9733600 (Version 1)
Quarter: 2013Q4

REPORT INFORMATION
  Report Type: Report from Study
  Country: KE (occurrence: KE)
  Receive Date: 20131205
  Receipt Date: 20131205
  Transmission Date: 20140711
  Serious: Yes (Death)
  Sender: FDA-Public Use
  Company Number: KE-VIIV HEALTHCARE LIMITED-B0950259A

PATIENT
  Age: 45 Year
  Sex: Male

DRUGS (9)
  1. KIVEXA [Suspect]
     Indication: HIV INFECTION
     Dates: start: 20131017, end: 20131123
  2. EFAVIRENZ [Suspect]
     Dates: start: 20130815, end: 20131123
  3. SEPTRIN [Suspect]
     Dates: start: 20130801, end: 20131107
  4. FOOD [Suspect]
     Dates: start: 20130815, end: 20131123
  5. CIPROFLOXACIN [Suspect]
     Dates: start: 20131017, end: 20131112
  6. TINIDAZOLE [Suspect]
     Dates: start: 20131107, end: 20131109
  7. UNKNOWN DRUG [Suspect]
     Dates: start: 20131107, end: 20131123
  8. FLUCONAZOLE [Suspect]
     Dates: start: 20131107, end: 20131121
  9. FOOD [Suspect]
     Dates: start: 20131107, end: 20131121

REACTIONS (1)
  - Death [Fatal]
